FAERS Safety Report 5515432-8 (Version None)
Quarter: 2007Q4

REPORT INFORMATION
  Report Type: 
  Country: None (occurrence: None)
  Receive Date: 20071113
  Receipt Date: 20070214
  Transmission Date: 20080405
  Serious: No
  Sender: FDA-Public Use
  Company Number: A0639574A

PATIENT
  Age: 69 Year
  Sex: Male

DRUGS (7)
  1. COREG [Suspect]
     Dosage: 6.25MG TWICE PER DAY
     Route: 048
     Dates: start: 20060801, end: 20070101
  2. NORVASC [Concomitant]
  3. VYTORIN [Concomitant]
  4. DYAZIDE [Concomitant]
  5. FLONASE [Concomitant]
  6. ASPIRIN [Concomitant]
  7. VITAMINS [Concomitant]

REACTIONS (2)
  - DYSPNOEA [None]
  - MYALGIA [None]
